FAERS Safety Report 15498922 (Version 1)
Quarter: 2018Q4

REPORT INFORMATION
  Report Type: Spontaneous
  Country: US (occurrence: US)
  Receive Date: 20181015
  Receipt Date: 20181015
  Transmission Date: 20190205
  Serious: Yes (Other)
  Sender: FDA-Public Use
  Company Number: US-MYLANLABS-2018M1073083

PATIENT
  Sex: Male

DRUGS (1)
  1. OLMESARTAN MEDOXOMIL TABLETS [Suspect]
     Active Substance: OLMESARTAN MEDOXOMIL
     Indication: PRODUCT USED FOR UNKNOWN INDICATION
     Dosage: 5 MG, BID
     Route: 048
     Dates: start: 201806, end: 20180925

REACTIONS (3)
  - Headache [Recovered/Resolved]
  - Swelling [Recovered/Resolved]
  - Deafness unilateral [Recovered/Resolved]
